FAERS Safety Report 9312540 (Version 3)
Quarter: 2013Q4

REPORT INFORMATION
  Report Type: Report from Study
  Country: FR (occurrence: FR)
  Receive Date: 20130528
  Receipt Date: 20131119
  Transmission Date: 20140711
  Serious: Yes (Death, Hospitalization, Other)
  Sender: FDA-Public Use
  Company Number: FR-CELGENEUS-056-C4047-13052669

PATIENT
  Age: 56 Year
  Sex: Female
  Weight: 62 kg

DRUGS (18)
  1. CC-4047 [Suspect]
     Indication: PLASMA CELL MYELOMA
     Dosage: 4 MILLIGRAM
     Route: 048
     Dates: start: 201302, end: 20130315
  2. CC-4047 [Suspect]
     Dosage: 2 MILLIGRAM
     Route: 048
  3. DEXAMETHASONE [Concomitant]
     Indication: PLASMA CELL MYELOMA
     Dosage: 40 MILLIGRAM
     Route: 065
  4. DEXAMETHASONE [Concomitant]
     Dosage: 40 MILLIGRAM
     Route: 065
     Dates: start: 20110125
  5. DEXAMETHASONE [Concomitant]
     Route: 065
     Dates: start: 20121008
  6. DEXAMETHASONE [Concomitant]
     Route: 065
     Dates: start: 20121029
  7. DEXAMETHASONE [Concomitant]
     Route: 065
     Dates: start: 201211
  8. DEXAMETHASONE [Concomitant]
     Route: 065
     Dates: start: 20130109
  9. DEXAMETHASONE [Concomitant]
     Dosage: 40 MILLIGRAM
     Route: 065
  10. LEVOTHYROX [Concomitant]
     Indication: HYPOTHYROIDISM
     Dosage: 150 MILLIGRAM
     Route: 065
     Dates: start: 20130310
  11. ARIXTRA [Concomitant]
     Indication: THROMBOSIS
     Dosage: 2.5 MILLIGRAM
     Route: 058
     Dates: start: 20130310, end: 20130316
  12. ARIXTRA [Concomitant]
     Dosage: 2.5 MILLIGRAM
     Route: 058
     Dates: start: 20130517
  13. BINOCRIT [Concomitant]
     Indication: PRODUCT USED FOR UNKNOWN INDICATION
     Dosage: 5714.2857 MILLIGRAM
     Route: 058
     Dates: start: 20130310
  14. ORACILLINE [Concomitant]
     Indication: PRODUCT USED FOR UNKNOWN INDICATION
     Route: 041
     Dates: start: 20130310
  15. ZELITREX [Concomitant]
     Indication: PRODUCT USED FOR UNKNOWN INDICATION
     Route: 048
     Dates: start: 20130310
  16. TOPALGIC [Concomitant]
     Indication: PRODUCT USED FOR UNKNOWN INDICATION
     Dosage: 300 MILLIGRAM
     Route: 048
     Dates: start: 20130310
  17. INIPOMP [Concomitant]
     Indication: PRODUCT USED FOR UNKNOWN INDICATION
     Route: 048
     Dates: start: 20130310
  18. EPO [Concomitant]
     Indication: PRODUCT USED FOR UNKNOWN INDICATION
     Route: 048

REACTIONS (7)
  - Staphylococcal bacteraemia [Recovered/Resolved]
  - Febrile neutropenia [Recovered/Resolved]
  - Thrombocytopenia [Recovered/Resolved]
  - Plasma cell myeloma [Fatal]
  - Diarrhoea [Recovered/Resolved]
  - Constipation [Unknown]
  - Blood alkaline phosphatase increased [Recovering/Resolving]
